FAERS Safety Report 4641772-0 (Version None)
Quarter: 2005Q2

REPORT INFORMATION
  Report Type: 
  Country: None (occurrence: None)
  Receive Date: 20050421
  Receipt Date: 20050418
  Transmission Date: 20051028
  Serious: Yes (Life-Threatening, Disabling, Other)
  Sender: FDA-Public Use
  Company Number: US-MERCK-0504USA03253

PATIENT
  Age: 57 Year
  Sex: Male

DRUGS (3)
  1. ZETIA [Suspect]
     Route: 048
  2. NIASPAN [Concomitant]
     Route: 065
  3. ZOCOR [Concomitant]
     Route: 065

REACTIONS (3)
  - MOUTH ULCERATION [None]
  - SWOLLEN TONGUE [None]
  - URTICARIA [None]
